FAERS Safety Report 16688848 (Version 2)
Quarter: 2019Q3

REPORT INFORMATION
  Report Type: Report from Study
  Country: US (occurrence: US)
  Receive Date: 20190809
  Receipt Date: 20190926
  Transmission Date: 20191004
  Serious: Yes (Hospitalization, Other)
  Sender: FDA-Public Use
  Company Number: US-MYLANLABS-2019M1025710

PATIENT
  Sex: Female
  Weight: 113 kg

DRUGS (1)
  1. GLATIRAMER ACETATE INJECTION [Suspect]
     Active Substance: GLATIRAMER ACETATE
     Indication: RELAPSING-REMITTING MULTIPLE SCLEROSIS
     Dosage: 40 MILLIGRAM, 3XW
     Route: 058

REACTIONS (15)
  - Pain [Unknown]
  - Malaise [Unknown]
  - Injection site inflammation [Unknown]
  - Injection site pain [Unknown]
  - Injection site warmth [Unknown]
  - Injection site bruising [Unknown]
  - Rash [Unknown]
  - Injection site swelling [Unknown]
  - Ovarian cyst [Unknown]
  - Chest discomfort [Unknown]
  - Respiratory arrest [Unknown]
  - Chest pain [Unknown]
  - Injection site mass [Unknown]
  - Pyrexia [Unknown]
  - Injection site urticaria [Unknown]
